FAERS Safety Report 8124215-4 (Version None)
Quarter: 2012Q1

REPORT INFORMATION
  Report Type: 
  Country: None (occurrence: None)
  Receive Date: 20120209
  Receipt Date: 20120202
  Transmission Date: 20120608
  Serious: Yes (Other)
  Sender: FDA-Public Use
  Company Number: JP-PFIZER INC-2012029476

PATIENT

DRUGS (2)
  1. VFEND [Suspect]
     Route: 041
  2. MICAFUNGIN SODIUM [Concomitant]
     Route: 041

REACTIONS (1)
  - RHABDOMYOLYSIS [None]
